FAERS Safety Report 8307351-9 (Version None)
Quarter: 2012Q2

REPORT INFORMATION
  Report Type: 
  Country: None (occurrence: None)
  Receive Date: 20120424
  Receipt Date: 20120412
  Transmission Date: 20120825
  Serious: Yes (Other)
  Sender: FDA-Public Use
  Company Number: JP-BRISTOL-MYERS SQUIBB COMPANY-16477127

PATIENT
  Age: 17 Year
  Sex: Female

DRUGS (8)
  1. ETOPOSIDE [Suspect]
     Indication: ACUTE LYMPHOCYTIC LEUKAEMIA
  2. CYTARABINE [Suspect]
     Indication: ACUTE LYMPHOCYTIC LEUKAEMIA
  3. ITRACONAZOLE [Suspect]
     Indication: ACUTE LYMPHOCYTIC LEUKAEMIA
  4. MERCAPTOPURINE [Suspect]
     Indication: ACUTE LYMPHOCYTIC LEUKAEMIA
  5. DEXAMETHASONE [Suspect]
     Indication: ACUTE LYMPHOCYTIC LEUKAEMIA
  6. METHOTREXATE [Suspect]
     Indication: ACUTE LYMPHOCYTIC LEUKAEMIA
     Dosage: 2ND DOSE STOPPED ON DAY 15
  7. LEUCOVORIN CALCIUM [Suspect]
     Indication: ACUTE LYMPHOCYTIC LEUKAEMIA
  8. VINCRISTINE [Suspect]
     Indication: ACUTE LYMPHOCYTIC LEUKAEMIA
     Dosage: 2ND DOSE STOPPED ON 15 DAY

REACTIONS (4)
  - RENAL IMPAIRMENT [None]
  - SUBILEUS [None]
  - RASH [None]
  - LEUKOENCEPHALOPATHY [None]
